FAERS Safety Report 5383907-0 (Version None)
Quarter: 2007Q3

REPORT INFORMATION
  Report Type: 
  Country: None (occurrence: None)
  Receive Date: 20070711
  Receipt Date: 20070710
  Transmission Date: 20080115
  Serious: Yes (Hospitalization)
  Sender: FDA-Public Use
  Company Number: US-BRISTOL-MYERS SQUIBB COMPANY-13841002

PATIENT
  Age: 73 Year
  Sex: Female

DRUGS (2)
  1. CYTOXAN [Suspect]
  2. COPAXONE [Suspect]
     Indication: MULTIPLE SCLEROSIS
     Route: 058
     Dates: start: 20030201

REACTIONS (2)
  - ASTHENIA [None]
  - BLOOD SODIUM DECREASED [None]
